FAERS Safety Report 6211731-5 (Version None)
Quarter: 2009Q2

REPORT INFORMATION
  Report Type: 
  Country: None (occurrence: None)
  Receive Date: 20090602
  Receipt Date: 20090525
  Transmission Date: 20091009
  Serious: Yes (Hospitalization)
  Sender: FDA-Public Use
  Company Number: FR-PFIZER INC-2009217465

PATIENT
  Age: 69 Year

DRUGS (13)
  1. TAHOR [Suspect]
     Dosage: UNK
     Route: 048
     Dates: end: 20090228
  2. RIFAMPIN AND ISONIAZID [Suspect]
     Dosage: UNK
     Route: 048
     Dates: start: 20090128, end: 20090226
  3. ZYLORIC ^FAES^ [Suspect]
     Dosage: UNK
     Route: 048
     Dates: end: 20090228
  4. GLUCOR [Suspect]
     Dosage: UNK
     Route: 048
     Dates: end: 20090228
  5. RIMACTANE [Concomitant]
     Dosage: 600 MG, 1X/DAY
     Dates: start: 20090227
  6. OFLOCET [Concomitant]
     Dosage: 200 MG, 2X/DAY
     Route: 048
     Dates: start: 20090227
  7. CORTANCYL [Concomitant]
     Dosage: 120 MG, 1X/DAY
     Route: 048
     Dates: start: 20090223, end: 20090301
  8. EURELIX [Concomitant]
  9. MONO-TILDIEM [Concomitant]
  10. CACIT D3 [Concomitant]
  11. FOSAMAX [Concomitant]
  12. DIFFU K [Concomitant]
  13. COZAAR [Concomitant]
     Dosage: UNK
     Dates: start: 20090201, end: 20090301

REACTIONS (1)
  - CYTOLYTIC HEPATITIS [None]
